FAERS Safety Report 16247830 (Version 1)
Quarter: 2019Q2

REPORT INFORMATION
  Report Type: Spontaneous
  Country: CN (occurrence: CN)
  Receive Date: 20190428
  Receipt Date: 20190428
  Transmission Date: 20190711
  Serious: Yes (Hospitalization)
  Sender: FDA-Public Use
  Company Number: PHHY2019CN091467

PATIENT
  Age: 12 Year
  Sex: Female
  Weight: 24.5 kg

DRUGS (8)
  1. METHYLPREDNISOLONE. [Suspect]
     Active Substance: METHYLPREDNISOLONE
     Dosage: 8 MG, QD
     Route: 048
     Dates: start: 201702
  2. METHYLPREDNISOLONE. [Suspect]
     Active Substance: METHYLPREDNISOLONE
     Dosage: WEAN HER MEDICATIONS OVER THE NEXT 8 MONTHS
     Route: 048
  3. METHOTREXATE. [Concomitant]
     Active Substance: METHOTREXATE
     Indication: STILL^S DISEASE
     Dosage: 12.5 MG, QW
     Route: 048
  4. NAPROXEN. [Concomitant]
     Active Substance: NAPROXEN
     Indication: STILL^S DISEASE
     Dosage: 250 MG, BID
     Route: 065
  5. DICLOFENAC [Concomitant]
     Active Substance: DICLOFENAC
     Indication: STILL^S DISEASE
     Dosage: 25 MG, UNK (12 DAYS)
     Route: 048
     Dates: start: 201702
  6. ETANERCEPT [Concomitant]
     Active Substance: ETANERCEPT
     Indication: STILL^S DISEASE
     Dosage: 25 MG, QW
     Route: 058
     Dates: start: 201702
  7. METHYLPREDNISOLONE. [Suspect]
     Active Substance: METHYLPREDNISOLONE
     Indication: STILL^S DISEASE
     Dosage: 12 MG, UNK (12 DAYS)
     Route: 048
  8. METHOTREXATE. [Concomitant]
     Active Substance: METHOTREXATE
     Dosage: WEAN HER MEDICATIONS OVER THE NEXT 8 MONTHS
     Route: 048

REACTIONS (11)
  - Pyrexia [Recovered/Resolved]
  - Compression fracture [Unknown]
  - Abdominal pain upper [Unknown]
  - Disease progression [Unknown]
  - Bone swelling [Unknown]
  - Still^s disease [Unknown]
  - Osteoporosis [Unknown]
  - Chronic gastritis [Unknown]
  - Thoracic vertebral fracture [Unknown]
  - Body height abnormal [Unknown]
  - Weight abnormal [Unknown]

NARRATIVE: CASE EVENT DATE: 201702
